FAERS Safety Report 8415262-3 (Version None)
Quarter: 2012Q2

REPORT INFORMATION
  Report Type: 
  Country: None (occurrence: None)
  Receive Date: 20120606
  Receipt Date: 20120602
  Transmission Date: 20120825
  Serious: No
  Sender: FDA-Public Use
  Company Number: US-BAYER-2012-055514

PATIENT
  Sex: Male

DRUGS (1)
  1. NEXAVAR [Suspect]
     Indication: HEPATIC NEOPLASM MALIGNANT
     Dosage: 400 MG, BID
     Dates: start: 20120101

REACTIONS (7)
  - SKIN EXFOLIATION [None]
  - SKIN FISSURES [None]
  - RASH MACULAR [None]
  - DRY SKIN [None]
  - HYPERTENSION [None]
  - ERYTHEMA [None]
  - PAIN IN EXTREMITY [None]
